FAERS Safety Report 7059657-1 (Version None)
Quarter: 2010Q4

REPORT INFORMATION
  Report Type: 
  Country: None (occurrence: None)
  Receive Date: 20101025
  Receipt Date: 20101015
  Transmission Date: 20110411
  Serious: Yes (Disabling)
  Sender: FDA-Public Use
  Company Number: JP-ASTRAZENECA-2010SE24348

PATIENT
  Age: 22176 Day
  Sex: Female
  Weight: 62 kg

DRUGS (3)
  1. MARCAINE HYDROCHLORIDE PRESERVATIVE FREE [Suspect]
     Indication: SPINAL ANAESTHESIA
     Route: 037
     Dates: start: 20100421, end: 20100421
  2. POPSCAINE [Suspect]
     Indication: ANALGESIC THERAPY
     Dosage: 4 ML/HR CONTINUOUS: THE TOTAL DOSE WAS 100 ML.
     Route: 008
     Dates: start: 20100421, end: 20100422
  3. XYLOCAINE [Concomitant]
     Indication: EPIDURAL TEST DOSE
     Dosage: 4 ML WAS ADMINISTERED VIA L3/4 VERTEBRAL INTERSPACE.
     Route: 008
     Dates: start: 20100421, end: 20100421

REACTIONS (1)
  - RADICULITIS [None]
